FAERS Safety Report 25205793 (Version 1)
Quarter: 2025Q2

REPORT INFORMATION
  Report Type: Spontaneous
  Country: US (occurrence: US)
  Receive Date: 20250417
  Receipt Date: 20250417
  Transmission Date: 20250717
  Serious: No
  Sender: BAUSCH AND LOMB
  Company Number: US-BAUSCH-BL-2025-004827

PATIENT
  Age: 75 Year
  Sex: Female

DRUGS (3)
  1. HYDROCORTISONE [Suspect]
     Active Substance: HYDROCORTISONE
     Indication: Product used for unknown indication
     Route: 065
  2. TUKYSA [Suspect]
     Active Substance: TUCATINIB
     Indication: Neoplasm malignant
     Route: 065
  3. CAPECITABINE [Suspect]
     Active Substance: CAPECITABINE
     Indication: Neoplasm malignant
     Dosage: X 500 MILLIGRAM IN 0.5 DAY // 1000 MILLIGRAM
     Route: 048

REACTIONS (5)
  - Epistaxis [Unknown]
  - Burning sensation [Unknown]
  - Rash [Unknown]
  - Condition aggravated [Unknown]
  - Drug hypersensitivity [Unknown]
